FAERS Safety Report 6289211-0 (Version None)
Quarter: 2009Q3

REPORT INFORMATION
  Report Type: 
  Country: None (occurrence: None)
  Receive Date: 20090729
  Receipt Date: 20070802
  Transmission Date: 20100115
  Serious: Yes (Other)
  Sender: FDA-Public Use
  Company Number: US-ASTRAZENECA-2007UW05498

PATIENT
  Age: 27 Year
  Sex: Female
  Weight: 70.8 kg

DRUGS (43)
  1. SEROQUEL [Suspect]
     Indication: BIPOLAR DISORDER
     Route: 048
     Dates: start: 19970101, end: 20070208
  2. SEROQUEL [Suspect]
     Indication: DEPRESSION
     Route: 048
     Dates: start: 19970101, end: 20070208
  3. SEROQUEL [Suspect]
     Indication: SCHIZOPHRENIA
     Route: 048
     Dates: start: 19970101, end: 20070208
  4. SEROQUEL [Suspect]
     Indication: ANXIETY
     Route: 048
     Dates: start: 19970101, end: 20070208
  5. SEROQUEL [Suspect]
     Dosage: 25 MG-500 MG
     Route: 048
     Dates: start: 20040713, end: 20060511
  6. SEROQUEL [Suspect]
     Dosage: 25 MG-500 MG
     Route: 048
     Dates: start: 20040713, end: 20060511
  7. SEROQUEL [Suspect]
     Dosage: 25 MG-500 MG
     Route: 048
     Dates: start: 20040713, end: 20060511
  8. SEROQUEL [Suspect]
     Dosage: 25 MG-500 MG
     Route: 048
     Dates: start: 20040713, end: 20060511
  9. RISPERDAL [Suspect]
     Indication: BIPOLAR DISORDER
     Dates: start: 20011110, end: 20030917
  10. RISPERDAL [Suspect]
     Indication: DEPRESSION
     Dates: start: 20011110, end: 20030917
  11. RISPERDAL [Suspect]
     Indication: SCHIZOPHRENIA
     Dates: start: 20011110, end: 20030917
  12. HALDOL [Concomitant]
  13. BENTYL [Concomitant]
  14. GLYBURIDE [Concomitant]
  15. DULCOLAX [Concomitant]
  16. PROZAC [Concomitant]
  17. DEMULEN 1/35-21 [Concomitant]
  18. NAPROXEN [Concomitant]
  19. ACIPHEX [Concomitant]
  20. PAXIL [Concomitant]
  21. TRAZODONE HCL [Concomitant]
  22. ULTRAM [Concomitant]
  23. FLEXERIL [Concomitant]
  24. REGLAN [Concomitant]
  25. TRI-LEVLEN 28 [Concomitant]
  26. SINGULAIR [Concomitant]
  27. NEURONTIN [Concomitant]
  28. ELAVIL [Concomitant]
  29. LORTAB [Concomitant]
  30. LISINOPRIL [Concomitant]
  31. BUSPAR [Concomitant]
  32. INDOCIN [Concomitant]
  33. CYCLOBENZAPRINE HCL [Concomitant]
  34. CARISOPRODOL [Concomitant]
  35. LEVAQUIN [Concomitant]
  36. PIROXICAM [Concomitant]
  37. ALBUTEROL [Concomitant]
  38. ALTACE [Concomitant]
  39. ZOCOR [Concomitant]
  40. LOPID [Concomitant]
  41. GLUCOPHAGE [Concomitant]
  42. VALIUM [Concomitant]
  43. CELEXA [Concomitant]

REACTIONS (5)
  - DIABETES MELLITUS [None]
  - DIABETIC GASTROPARESIS [None]
  - HYPOGLYCAEMIA [None]
  - NEUROPATHY PERIPHERAL [None]
  - WEIGHT DECREASED [None]
